FAERS Safety Report 8135319-4 (Version None)
Quarter: 2012Q1

REPORT INFORMATION
  Report Type: 
  Country: None (occurrence: None)
  Receive Date: 20120214
  Receipt Date: 20120201
  Transmission Date: 20120608
  Serious: Yes (Death)
  Sender: FDA-Public Use
  Company Number: JP-ROCHE-1023428

PATIENT
  Sex: Male

DRUGS (3)
  1. ACTEMRA [Suspect]
     Indication: RHEUMATOID ARTHRITIS
     Route: 041
     Dates: start: 20100803, end: 20110603
  2. PREDNISOLONE [Concomitant]
     Indication: RHEUMATOID ARTHRITIS
     Route: 048
     Dates: end: 20110201
  3. ACTEMRA [Suspect]
     Route: 041
     Dates: start: 20111031, end: 20111031

REACTIONS (1)
  - INTERSTITIAL LUNG DISEASE [None]
